FAERS Safety Report 5370450-8 (Version None)
Quarter: 2007Q2

REPORT INFORMATION
  Report Type: 
  Country: None (occurrence: None)
  Receive Date: 20070625
  Receipt Date: 20070625
  Transmission Date: 20071010
  Serious: No
  Sender: FDA-Public Use
  Company Number: None

PATIENT
  Age: 39 Year
  Sex: Male
  Weight: 74.8435 kg

DRUGS (2)
  1. FENTANYL TRANSDERMAL SYSTEM [Suspect]
     Indication: PAIN
     Dosage: 75MCG/HOUR X3 DAYS TRANSDERMAL
     Route: 062
     Dates: start: 20070615, end: 20070622
  2. FENTANYL TRANSDERMAL SYSTEM [Suspect]
     Indication: PAIN
     Dosage: 50MCG/HOUR X3 DAYS TRANSDERMA
     Route: 062
     Dates: start: 20070601, end: 20070619

REACTIONS (1)
  - PHARMACEUTICAL PRODUCT COMPLAINT [None]
